FAERS Safety Report 8381914-7 (Version None)
Quarter: 2012Q2

REPORT INFORMATION
  Report Type: 
  Country: None (occurrence: None)
  Receive Date: 20120524
  Receipt Date: 20120521
  Transmission Date: 20120825
  Serious: Yes (Hospitalization)
  Sender: FDA-Public Use
  Company Number: US-B.I. PHARMACEUTICALS,INC./RIDGEFIELD-2012-BP-11079BP

PATIENT
  Sex: Female

DRUGS (7)
  1. FISH OIL [Concomitant]
     Indication: SUPPLEMENTATION THERAPY
  2. PROAIR HFA [Concomitant]
     Indication: ASTHMA
  3. LOSARTAN POTASSIUM [Concomitant]
     Indication: HYPERTENSION
     Route: 048
  4. SINGULAIR [Concomitant]
     Indication: ASTHMA
  5. ASMANEX TWISTHALER [Concomitant]
     Indication: ASTHMA
     Route: 055
  6. SPIRIVA [Suspect]
     Indication: CHRONIC OBSTRUCTIVE PULMONARY DISEASE
     Dosage: 18 MCG
     Route: 055
     Dates: start: 20101201
  7. SIMVASTATIN [Concomitant]
     Indication: BLOOD CHOLESTEROL INCREASED
     Dosage: 80 MG
     Route: 048

REACTIONS (1)
  - ASTHMA [None]
